FAERS Safety Report 12592217 (Version 2)
Quarter: 2016Q3

REPORT INFORMATION
  Report Type: Report from Study
  Country: US (occurrence: US)
  Receive Date: 20160726
  Receipt Date: 20160927
  Transmission Date: 20161109
  Serious: Yes (Hospitalization, Other)
  Sender: FDA-Public Use
  Company Number: US-AMGEN-USASL2016093938

PATIENT
  Age: 73 Year
  Sex: Female

DRUGS (1)
  1. NPLATE [Suspect]
     Active Substance: ROMIPLOSTIM
     Indication: IMMUNE THROMBOCYTOPENIC PURPURA
     Dosage: UNK
     Route: 065

REACTIONS (9)
  - Hospitalisation [Recovered/Resolved]
  - Immune thrombocytopenic purpura [Unknown]
  - Platelet count abnormal [Unknown]
  - Gingival discolouration [Unknown]
  - Muscle rupture [Unknown]
  - Gingival bleeding [Unknown]
  - Cellulitis [Unknown]
  - Diverticulitis [Unknown]
  - Internal haemorrhage [Unknown]

NARRATIVE: CASE EVENT DATE: 20160710
